FAERS Safety Report 9272780 (Version 1)
Quarter: 2013Q2

REPORT INFORMATION
  Report Type: Spontaneous
  Country: US (occurrence: US)
  Receive Date: 20130506
  Receipt Date: 20130506
  Transmission Date: 20140414
  Serious: No
  Sender: FDA-Public Use
  Company Number: US-ASTRAZENECA-2012SE31645

PATIENT
  Sex: Male

DRUGS (2)
  1. PRILOSEC OTC [Suspect]
     Indication: DUODENAL ULCER
     Route: 048
     Dates: start: 20120510, end: 20120510
  2. TERBINAFINE HYDROCHLORIDE [Concomitant]
     Dosage: UNKNOWN

REACTIONS (3)
  - Chest pain [Unknown]
  - Abdominal pain upper [Unknown]
  - Incorrect dose administered [Unknown]
